FAERS Safety Report 7554573-0 (Version None)
Quarter: 2011Q2

REPORT INFORMATION
  Report Type: 
  Country: None (occurrence: None)
  Receive Date: 20110617
  Receipt Date: 20110606
  Transmission Date: 20111010
  Serious: Yes (Hospitalization)
  Sender: FDA-Public Use
  Company Number: IT-ROCHE-781763

PATIENT
  Age: 75 Year
  Sex: Male
  Weight: 74 kg

DRUGS (12)
  1. RAMIPRIL [Concomitant]
  2. MIRCERA [Suspect]
     Indication: ANAEMIA
     Route: 058
     Dates: start: 20100301, end: 20100501
  3. AMLODIPINE [Concomitant]
  4. ACETYL SALICYLIC ACID COMPOUND TAB [Concomitant]
  5. ATORVASTATIN [Concomitant]
  6. MIRCERA [Suspect]
     Dosage: LOWERED DOSE FROM 50 MICROGRAM TO 30 MICROGRAM
     Route: 058
     Dates: start: 20110301, end: 20110401
  7. RANITIDINE [Concomitant]
  8. SODIUM BICARBONATE [Concomitant]
  9. INSULIN LISPRO [Concomitant]
  10. DOXAZOSIN MESYLATE [Concomitant]
  11. MIRCERA [Suspect]
     Route: 058
     Dates: start: 20100501, end: 20100901
  12. ALLOPURINOL [Concomitant]

REACTIONS (4)
  - HYPOAESTHESIA [None]
  - POLYCYTHAEMIA [None]
  - PARAESTHESIA [None]
  - CEREBROVASCULAR DISORDER [None]
